FAERS Safety Report 8563858-0 (Version None)
Quarter: 2012Q3

REPORT INFORMATION
  Report Type: 
  Country: None (occurrence: None)
  Receive Date: 20120803
  Receipt Date: 20120725
  Transmission Date: 20120928
  Serious: Yes (Other)
  Sender: FDA-Public Use
  Company Number: US-009507513-2011SP052660

PATIENT

DRUGS (3)
  1. VICTRELIS [Suspect]
     Indication: HEPATITIS C
     Dosage: UNK UNK, UNKNOWN
     Route: 065
     Dates: start: 20111123
  2. RIBAVIRIN [Suspect]
     Indication: HEPATITIS C
     Dosage: UNK UNK, UNKNOWN
     Route: 065
     Dates: start: 20111025
  3. PEG-INTRON [Suspect]
     Indication: HEPATITIS C
     Dosage: UNK UNK, UNKNOWN
     Route: 065
     Dates: start: 20111025

REACTIONS (22)
  - HYPOPHAGIA [None]
  - ANXIETY [None]
  - DYSPNOEA [None]
  - FATIGUE [None]
  - HYPERSOMNIA [None]
  - ANAEMIA [None]
  - LOSS OF CONSCIOUSNESS [None]
  - TEETH BRITTLE [None]
  - HEAD INJURY [None]
  - TOOTH FRACTURE [None]
  - VOMITING [None]
  - ASTHENIA [None]
  - MALAISE [None]
  - DYSGEUSIA [None]
  - DEPRESSION [None]
  - ORAL CANDIDIASIS [None]
  - RASH [None]
  - WEIGHT DECREASED [None]
  - INSOMNIA [None]
  - DECREASED APPETITE [None]
  - HYPERCHLORHYDRIA [None]
  - ALOPECIA [None]
